FAERS Safety Report 10238220 (Version 1)
Quarter: 2014Q2

REPORT INFORMATION
  Report Type: Spontaneous
  Country: US (occurrence: US)
  Receive Date: 20140616
  Receipt Date: 20140616
  Transmission Date: 20141212
  Serious: Yes (Hospitalization)
  Sender: FDA-Public Use
  Company Number: US-009507513-1406USA006770

PATIENT
  Age: 35 Year
  Sex: Male

DRUGS (2)
  1. JANUMET XR [Suspect]
     Indication: DIABETES MELLITUS
     Dosage: 100/1000 MG/ONCE DAILY
     Route: 048
     Dates: end: 201404
  2. CRESTOR [Concomitant]

REACTIONS (1)
  - Hypoglycaemia [Recovered/Resolved]
